FAERS Safety Report 12014231 (Version 4)
Quarter: 2018Q1

REPORT INFORMATION
  Report Type: Other
  Country: CA (occurrence: CA)
  Receive Date: 20160205
  Receipt Date: 20180122
  Transmission Date: 20180508
  Serious: Yes (Hospitalization, Other)
  Sender: FDA-Public Use
  Company Number: CA-DUCHESNAY INC.-1047391

PATIENT
  Age: 26 Year
  Sex: Female
  Weight: 80 kg

DRUGS (18)
  1. OMEPRAZOLE. [Suspect]
     Active Substance: OMEPRAZOLE
     Route: 048
  2. ZOPICLONE [Suspect]
     Active Substance: ZOPICLONE
     Route: 048
  3. DIPHENHYDRAMINE. [Suspect]
     Active Substance: DIPHENHYDRAMINE
     Route: 048
  4. DICLEGIS [Suspect]
     Active Substance: DOXYLAMINE SUCCINATE\PYRIDOXINE HYDROCHLORIDE
     Indication: NAUSEA
     Route: 048
  5. FLOVENT [Suspect]
     Active Substance: FLUTICASONE PROPIONATE
  6. SALBUTAMOL [Suspect]
     Active Substance: ALBUTEROL
  7. DIMENHYDRINATE. [Suspect]
     Active Substance: DIMENHYDRINATE
     Route: 042
  8. BETAMETHASONE VALERATE. [Suspect]
     Active Substance: BETAMETHASONE VALERATE
     Route: 061
  9. IRON [Suspect]
     Active Substance: IRON
  10. REMICADE [Suspect]
     Active Substance: INFLIXIMAB
     Route: 042
  11. TYLENOL [Suspect]
     Active Substance: ACETAMINOPHEN
  12. APO-SALVENT [Suspect]
     Active Substance: ALBUTEROL
  13. ATENOLOL. [Suspect]
     Active Substance: ATENOLOL
  14. IMURAN [Suspect]
     Active Substance: AZATHIOPRINE
     Route: 048
  15. PREDNISONE. [Suspect]
     Active Substance: PREDNISONE
     Route: 048
  16. CITALOPRAM HYDROBROMIDE. [Suspect]
     Active Substance: CITALOPRAM HYDROBROMIDE
     Route: 048
  17. OXAZEPAM. [Suspect]
     Active Substance: OXAZEPAM
     Route: 048
  18. TORADOL [Suspect]
     Active Substance: KETOROLAC TROMETHAMINE

REACTIONS (8)
  - Rectal haemorrhage [Recovered/Resolved]
  - Diarrhoea [Not Recovered/Not Resolved]
  - Haemoglobin decreased [Not Recovered/Not Resolved]
  - Concussion [Not Recovered/Not Resolved]
  - Abdominal pain [Recovered/Resolved]
  - Dehydration [Recovered/Resolved]
  - Nausea [Not Recovered/Not Resolved]
  - Depression [Not Recovered/Not Resolved]
